FAERS Safety Report 18508079 (Version 3)
Quarter: 2021Q1

REPORT INFORMATION
  Report Type: Report from Study
  Country: JP (occurrence: JP)
  Receive Date: 20201116
  Receipt Date: 20210114
  Transmission Date: 20210419
  Serious: Yes (Death, Other)
  Sender: FDA-Public Use
  Company Number: JP-PFIZER INC-2020-07178

PATIENT
  Age: 69 Year
  Sex: Female

DRUGS (6)
  1. BRAFTOVI [Suspect]
     Active Substance: ENCORAFENIB
     Indication: MALIGNANT MELANOMA
     Dosage: 450 MG (450 MG, EVERYDAY)
     Route: 048
     Dates: start: 20191225, end: 20200106
  2. BRAFTOVI [Suspect]
     Active Substance: ENCORAFENIB
     Dosage: 450 MG (450 MG, EVERYDAY)
     Route: 048
     Dates: start: 20200111, end: 20200309
  3. MEKTOVI [Suspect]
     Active Substance: BINIMETINIB
     Dosage: 90 MG (90 MG, EVERYDAY)
     Route: 048
     Dates: start: 20200321, end: 20200731
  4. MEKTOVI [Suspect]
     Active Substance: BINIMETINIB
     Dosage: 90 MG (90 MG, EVERYDAY)
     Route: 048
     Dates: start: 20200111, end: 20200309
  5. BRAFTOVI [Suspect]
     Active Substance: ENCORAFENIB
     Dosage: 450 MG (450 MG, EVERYDAY)
     Route: 048
     Dates: start: 20200321, end: 20200731
  6. MEKTOVI [Suspect]
     Active Substance: BINIMETINIB
     Indication: MALIGNANT MELANOMA
     Dosage: 90 MG (90 MG, EVERYDAY)
     Route: 048
     Dates: start: 20191225, end: 20200106

REACTIONS (4)
  - Xanthopsia [Recovered/Resolved]
  - Vomiting [Recovered/Resolved]
  - Helicobacter infection [Recovered/Resolved]
  - Hepatic function abnormal [Recovered/Resolved]

NARRATIVE: CASE EVENT DATE: 20191227
